FAERS Safety Report 17658545 (Version 5)
Quarter: 2020Q4

REPORT INFORMATION
  Report Type: Spontaneous
  Country: US (occurrence: US)
  Receive Date: 20200412
  Receipt Date: 20201008
  Transmission Date: 20210113
  Serious: No
  Sender: FDA-Public Use
  Company Number: US-SA-2020SA092266

PATIENT

DRUGS (4)
  1. DUPIXENT [Suspect]
     Active Substance: DUPILUMAB
     Indication: DERMATITIS ATOPIC
     Dosage: 300 MG, QOW
     Route: 058
     Dates: start: 20191210
  2. DULOXETINE. [Concomitant]
     Active Substance: DULOXETINE
     Dosage: 1 DF, QD
  3. PANTOPRAZOLE [Concomitant]
     Active Substance: PANTOPRAZOLE
     Dosage: 1 DF, QD, BEFORE BREAKFAST
  4. VITAMIN D3 [Concomitant]
     Active Substance: CHOLECALCIFEROL
     Dosage: UNK UNK, QW
     Route: 048

REACTIONS (11)
  - Cough [Not Recovered/Not Resolved]
  - Dyskinesia [Unknown]
  - Therapeutic response shortened [Unknown]
  - Bronchitis chronic [Not Recovered/Not Resolved]
  - Scab [Not Recovered/Not Resolved]
  - Dry skin [Unknown]
  - Memory impairment [Unknown]
  - Muscular weakness [Unknown]
  - Pruritus [Unknown]
  - General physical health deterioration [Unknown]
  - Product use issue [Unknown]
